FAERS Safety Report 5761700-4 (Version None)
Quarter: 2008Q2

REPORT INFORMATION
  Report Type: 
  Country: None (occurrence: None)
  Receive Date: 20080602
  Receipt Date: 20080521
  Transmission Date: 20081010
  Serious: Yes (Hospitalization)
  Sender: FDA-Public Use
  Company Number: 20085086

PATIENT
  Sex: Female

DRUGS (1)
  1. LIORESAL [Suspect]
     Indication: MUSCLE SPASTICITY
     Dosage: 150 MCG, DAILY, INTRATHECAL
     Route: 037

REACTIONS (5)
  - FEELING ABNORMAL [None]
  - LOCALISED OEDEMA [None]
  - MEDICAL DEVICE COMPLICATION [None]
  - MUSCLE TIGHTNESS [None]
  - NERVOUSNESS [None]
